FAERS Safety Report 10333644 (Version 1)
Quarter: 2014Q3

REPORT INFORMATION
  Report Type: Report from Study
  Country: GB (occurrence: GB)
  Receive Date: 20140723
  Receipt Date: 20140723
  Transmission Date: 20150326
  Serious: Yes (Death)
  Sender: FDA-Public Use
  Company Number: GB-ROCHE-1436022

PATIENT
  Age: 64 Year
  Sex: Female

DRUGS (15)
  1. ONDANSETRON [Concomitant]
     Active Substance: ONDANSETRON
     Indication: OESOPHAGEAL CARCINOMA
     Route: 048
     Dates: end: 20120402
  2. ONDANSETRON [Concomitant]
     Active Substance: ONDANSETRON
     Indication: OESOPHAGEAL CARCINOMA
     Route: 048
     Dates: end: 20120402
  3. MANNITOL 10% [Concomitant]
     Indication: OESOPHAGEAL CARCINOMA
     Route: 042
     Dates: end: 20120402
  4. NACL 0.9 IV SOLUTION [Concomitant]
     Indication: OESOPHAGEAL CARCINOMA
     Route: 042
     Dates: end: 20120402
  5. DOMPERIDONE [Concomitant]
     Active Substance: DOMPERIDONE
     Indication: OESOPHAGEAL CARCINOMA
     Route: 048
     Dates: end: 20120402
  6. EPIRUBICIN [Concomitant]
     Active Substance: EPIRUBICIN
     Indication: OESOPHAGEAL CARCINOMA
     Route: 040
     Dates: end: 20120402
  7. DEXAMETHASONE. [Concomitant]
     Active Substance: DEXAMETHASONE
     Indication: OESOPHAGEAL CARCINOMA
     Route: 048
     Dates: end: 20120402
  8. DEXAMETHASONE. [Concomitant]
     Active Substance: DEXAMETHASONE
     Indication: OESOPHAGEAL CARCINOMA
     Route: 048
     Dates: end: 20120402
  9. POTASSIUM CHLORIDE. [Concomitant]
     Active Substance: POTASSIUM CHLORIDE
     Indication: OESOPHAGEAL CARCINOMA
     Route: 042
     Dates: end: 20120402
  10. APREPITANT [Concomitant]
     Active Substance: APREPITANT
     Indication: OESOPHAGEAL CARCINOMA
     Route: 048
     Dates: end: 20120402
  11. CAPECITABINE [Suspect]
     Active Substance: CAPECITABINE
     Indication: OESOPHAGEAL CARCINOMA
     Route: 048
     Dates: end: 20120402
  12. LOPERAMIDE [Concomitant]
     Active Substance: LOPERAMIDE
     Indication: OESOPHAGEAL CARCINOMA
     Route: 048
     Dates: end: 20120402
  13. CISPLATIN. [Concomitant]
     Active Substance: CISPLATIN
     Indication: OESOPHAGEAL CARCINOMA
     Route: 042
     Dates: end: 20120402
  14. MAGNESIUM SULPHATE [Concomitant]
     Active Substance: MAGNESIUM SULFATE
     Indication: OESOPHAGEAL CARCINOMA
     Route: 042
     Dates: end: 20120402
  15. APREPITANT [Concomitant]
     Active Substance: APREPITANT
     Indication: OESOPHAGEAL CARCINOMA
     Route: 048
     Dates: end: 20120402

REACTIONS (1)
  - Death [Fatal]
